FAERS Safety Report 15808455 (Version 1)
Quarter: 2019Q1

REPORT INFORMATION
  Report Type: Report from Study
  Country: FR (occurrence: FR)
  Receive Date: 20190110
  Receipt Date: 20190110
  Transmission Date: 20190417
  Serious: Yes (Hospitalization, Other)
  Sender: FDA-Public Use
  Company Number: FR-PFIZER INC-2018131329

PATIENT
  Age: 58 Year
  Sex: Male
  Weight: 104 kg

DRUGS (6)
  1. OXYCONTIN [Concomitant]
     Active Substance: OXYCODONE HYDROCHLORIDE
     Dosage: 60 MG, 2X/DAY (MORNING AND EVENING)
     Route: 048
  2. PRAVASTATIN. [Concomitant]
     Active Substance: PRAVASTATIN
     Dosage: 20 MG, UNK
     Route: 048
  3. LORLATINIB [Suspect]
     Active Substance: LORLATINIB
     Indication: ADENOCARCINOMA
     Dosage: 100 MG, DAILY
     Route: 048
     Dates: start: 20171102
  4. OXYCONTIN [Concomitant]
     Active Substance: OXYCODONE HYDROCHLORIDE
     Dosage: 20 MG, 2X/DAY (MORNING AND EVENING)
     Route: 048
  5. LORLATINIB [Suspect]
     Active Substance: LORLATINIB
     Dosage: 25 MG, DAILY
     Dates: start: 20180702, end: 20180809
  6. ALPRAZOLAM. [Concomitant]
     Active Substance: ALPRAZOLAM
     Dosage: 0.25 MG, 1X/DAY (AT BED TIME WHEN NEEDED)
     Route: 048

REACTIONS (10)
  - Chest pain [Unknown]
  - Pleurisy [Recovering/Resolving]
  - Pyrexia [Unknown]
  - Oedema [Recovering/Resolving]
  - Pain in jaw [Unknown]
  - Cardiac failure acute [Recovered/Resolved]
  - Erythema [Unknown]
  - Dyspnoea [Recovered/Resolved]
  - Weight increased [Recovering/Resolving]
  - Mastication disorder [Unknown]

NARRATIVE: CASE EVENT DATE: 20180131
